FAERS Safety Report 15718128 (Version 1)
Quarter: 2018Q4

REPORT INFORMATION
  Report Type: Spontaneous
  Country: US (occurrence: US)
  Receive Date: 20181129
  Receipt Date: 20181129
  Transmission Date: 20190205
  Serious: No
  Sender: FDA-Public Use
  Company Number: None

PATIENT
  Age: 39 Year
  Sex: Female

DRUGS (2)
  1. LATUDA [Concomitant]
     Active Substance: LURASIDONE HYDROCHLORIDE
  2. MAKENA [Suspect]
     Active Substance: HYDROXYPROGESTERONE CAPROATE
     Indication: PREMATURE LABOUR
     Dosage: ?          QUANTITY:275MG/1.1ML 1 PEN ;?
     Route: 058
     Dates: start: 20180109

REACTIONS (3)
  - Injection site irritation [None]
  - Injection site mass [None]
  - Injection site pain [None]

NARRATIVE: CASE EVENT DATE: 20181127
